FAERS Safety Report 5047221-5 (Version None)
Quarter: 2006Q3

REPORT INFORMATION
  Report Type: 
  Country: None (occurrence: None)
  Receive Date: 20060703
  Receipt Date: 20060620
  Transmission Date: 20061208
  Serious: No
  Sender: FDA-Public Use
  Company Number: 06H-144-0308519-00

PATIENT
  Age: 65 Year
  Sex: Male

DRUGS (1)
  1. PROPOFOL [Suspect]
     Indication: SEDATIVE THERAPY

REACTIONS (1)
  - HEPATITIS ACUTE [None]
